FAERS Safety Report 4688446-8 (Version None)
Quarter: 2005Q2

REPORT INFORMATION
  Report Type: 
  Country: None (occurrence: None)
  Receive Date: 20050609
  Receipt Date: 20050523
  Transmission Date: 20051028
  Serious: Yes (Other)
  Sender: FDA-Public Use
  Company Number: 214682

PATIENT
  Age: 61 Year
  Sex: Female

DRUGS (8)
  1. RITUXAN(RITUMIMAB) CONC FOR SOLUTION FOR INFUSION [Suspect]
     Indication: NON-HODGKIN'S LYMPHOMA
     Dosage: 600 + 570 MG, INTRAVENOUS
     Route: 042
     Dates: start: 20020115, end: 20020207
  2. RITUXAN(RITUMIMAB) CONC FOR SOLUTION FOR INFUSION [Suspect]
     Indication: NON-HODGKIN'S LYMPHOMA
     Dosage: 600 + 570 MG, INTRAVENOUS
     Route: 042
     Dates: start: 20020304, end: 20020330
  3. EPIRUBICIN [Suspect]
     Indication: NON-HODGKIN'S LYMPHOMA
     Dosage: 24 MG, INTRAVENOUS
     Route: 042
     Dates: start: 20020117, end: 20020402
  4. ETOPOSIDE [Suspect]
     Indication: NON-HODGKIN'S LYMPHOMA
     Dosage: 80 MG, INTRAVENOUS
     Route: 042
     Dates: start: 20020117, end: 20020402
  5. VINCRISTINE [Suspect]
     Indication: NON-HODGKIN'S LYMPHOMA
     Dosage: 0.6 MG, INTRAVENOUS
     Route: 042
     Dates: start: 20020117, end: 20020402
  6. CYCLOPHOSPHAMIDE [Suspect]
     Indication: NON-HODGKIN'S LYMPHOMA
     Dosage: 1150MG/1200MG, INTRAVENOUS
     Route: 042
     Dates: start: 20020117, end: 20020402
  7. IBUPROFEN [Concomitant]
  8. CHLORPHENIRAMINE MALEATE (CHLORPHENIRAMINE [Concomitant]

REACTIONS (5)
  - BLOOD PRESSURE DECREASED [None]
  - CHILLS [None]
  - PANCYTOPENIA [None]
  - PYREXIA [None]
  - TACHYCARDIA [None]
